FAERS Safety Report 13203438 (Version 2)
Quarter: 2018Q2

REPORT INFORMATION
  Report Type: Report from Study
  Country: BR (occurrence: BR)
  Receive Date: 20170209
  Receipt Date: 20180418
  Transmission Date: 20180711
  Serious: Yes (Death, Other)
  Sender: FDA-Public Use
  Company Number: PHHY2017BR020286

PATIENT
  Sex: Male
  Weight: 70 kg

DRUGS (2)
  1. VITAMIN B [Concomitant]
     Active Substance: VITAMIN B
     Indication: VITAMIN B COMPLEX DEFICIENCY
     Route: 065
  2. EXELON PATCH [Suspect]
     Active Substance: RIVASTIGMINE
     Indication: DEMENTIA ALZHEIMER^S TYPE
     Dosage: 9.5 MG (PATCH 10 (CM2), UNK (2012 OR 2013)
     Route: 062

REACTIONS (6)
  - Blood pressure increased [Unknown]
  - Pneumonia aspiration [Fatal]
  - Cardiomegaly [Unknown]
  - Aspiration [Fatal]
  - Arrhythmia [Unknown]
  - Mitral valve disease [Unknown]
